FAERS Safety Report 9711033 (Version 2)
Quarter: 2013Q4

REPORT INFORMATION
  Report Type: Spontaneous
  Country: US (occurrence: US)
  Receive Date: 20131126
  Receipt Date: 20131126
  Transmission Date: 20140711
  Serious: No
  Sender: FDA-Public Use
  Company Number: US-BRISTOL-MYERS SQUIBB COMPANY-19034966

PATIENT
  Age: 33 Year
  Sex: Female

DRUGS (1)
  1. BYDUREON [Suspect]
     Indication: GLUCOSE TOLERANCE IMPAIRED

REACTIONS (8)
  - Injection site nodule [Unknown]
  - Injection site pruritus [Unknown]
  - Diarrhoea [Unknown]
  - Vomiting [Unknown]
  - Abdominal pain [Unknown]
  - Nausea [Unknown]
  - Tremor [Unknown]
  - Cold sweat [Unknown]
